FAERS Safety Report 16031748 (Version 1)
Quarter: 2020Q3

REPORT INFORMATION
  Report Type: Spontaneous
  Country: IT (occurrence: IT)
  Receive Date: 20190304
  Receipt Date: 20190304
  Transmission Date: 20201105
  Serious: Yes (Other)
  Sender: FDA-Public Use
  Company Number: IT-TEVA-2019-IT-1018054

PATIENT
  Age: 16 Year
  Sex: Female

DRUGS (5)
  1. RAMIPRIL. [Suspect]
     Active Substance: RAMIPRIL
     Indication: DRUG ABUSE
     Route: 048
     Dates: start: 20181104, end: 20181104
  2. ZIRTEC 10?MG COMPRESSE RIVESTITE CON FILM [Suspect]
     Active Substance: CETIRIZINE HYDROCHLORIDE
     Indication: DRUG ABUSE
     Route: 048
     Dates: start: 20181104, end: 20181104
  3. ETORICOXIB. [Suspect]
     Active Substance: ETORICOXIB
     Indication: DRUG ABUSE
     Route: 048
     Dates: start: 20181104, end: 20181104
  4. LASIX [Suspect]
     Active Substance: FUROSEMIDE
     Indication: DRUG ABUSE
     Route: 048
     Dates: start: 20181104, end: 20181104
  5. HYDROCHLOROTHIAZIDE. [Suspect]
     Active Substance: HYDROCHLOROTHIAZIDE
     Indication: DRUG ABUSE
     Route: 048
     Dates: start: 20181104, end: 20181104

REACTIONS (2)
  - Drug abuse [Recovering/Resolving]
  - Presyncope [Recovering/Resolving]

NARRATIVE: CASE EVENT DATE: 20181104
